FAERS Safety Report 22293770 (Version 3)
Quarter: 2023Q2

REPORT INFORMATION
  Report Type: Report from Study
  Country: US (occurrence: US)
  Receive Date: 20230508
  Receipt Date: 20230523
  Transmission Date: 20230722
  Serious: Yes (Other)
  Sender: FDA-Public Use
  Company Number: US-ABBVIE-4755298

PATIENT
  Sex: Female

DRUGS (2)
  1. RINVOQ [Suspect]
     Active Substance: UPADACITINIB
     Indication: Product used for unknown indication
     Dosage: EXTENDED RELEASE, FORM STRENGTH 15 MILLIGRAM, STARTED TWO TO THREE YEARS AGO AS REPORTED ON 03 MA...
     Route: 048
     Dates: end: 2023
  2. XELJANZ [Suspect]
     Active Substance: TOFACITINIB CITRATE
     Indication: Product used for unknown indication
     Dosage: STARTED IN 2023, FORM STRENGTH 11 MG
     Route: 048
     Dates: end: 20230429

REACTIONS (7)
  - Deafness [Not Recovered/Not Resolved]
  - Pain in extremity [Unknown]
  - Hypoacusis [Not Recovered/Not Resolved]
  - Sinusitis [Not Recovered/Not Resolved]
  - Middle ear effusion [Not Recovered/Not Resolved]
  - Eustachian tube dysfunction [Not Recovered/Not Resolved]
  - Drug ineffective [Unknown]

NARRATIVE: CASE EVENT DATE: 20230101
